FAERS Safety Report 9502986 (Version 1)
Quarter: 2013Q3

REPORT INFORMATION
  Report Type: Spontaneous
  Country: US (occurrence: US)
  Receive Date: 20130906
  Receipt Date: 20130906
  Transmission Date: 20140515
  Serious: Yes (Hospitalization, Other)
  Sender: FDA-Public Use
  Company Number: US-BANPHARM-20131661

PATIENT
  Age: 42 Month
  Sex: Female

DRUGS (1)
  1. IBUPROFEN UNKNOWN PRODUCT [Suspect]
     Indication: PYREXIA

REACTIONS (17)
  - Stevens-Johnson syndrome [Recovered/Resolved with Sequelae]
  - Toxic epidermal necrolysis [Recovered/Resolved with Sequelae]
  - Bronchiolitis [Recovered/Resolved with Sequelae]
  - Vaginal infection [Recovered/Resolved with Sequelae]
  - Haemorrhage urinary tract [Recovered/Resolved with Sequelae]
  - Uterine haemorrhage [Recovered/Resolved with Sequelae]
  - Vulvovaginal adhesion [Recovered/Resolved with Sequelae]
  - Uterine cervix stenosis [Recovered/Resolved with Sequelae]
  - Blindness unilateral [Unknown]
  - Lacrimation decreased [Unknown]
  - Photosensitivity reaction [Unknown]
  - Sinus disorder [Unknown]
  - Pulmonary fibrosis [Unknown]
  - Peripheral nerve injury [Unknown]
  - Petit mal epilepsy [Unknown]
  - Cognitive disorder [Unknown]
  - Balance disorder [Unknown]
